FAERS Safety Report 7270695-6 (Version None)
Quarter: 2011Q1

REPORT INFORMATION
  Report Type: 
  Country: None (occurrence: None)
  Receive Date: 20110202
  Receipt Date: 20110125
  Transmission Date: 20110831
  Serious: Yes (Hospitalization)
  Sender: FDA-Public Use
  Company Number: B0694058A

PATIENT
  Age: 80 Year
  Sex: Male

DRUGS (13)
  1. ASPIRIN [Concomitant]
     Dosage: 100MG PER DAY
     Route: 048
  2. PLAVIX [Concomitant]
     Dosage: 75MG PER DAY
     Route: 048
  3. CRESTOR [Concomitant]
     Dosage: 2.5MG PER DAY
     Route: 048
  4. ARTIST [Concomitant]
     Dosage: 2.5MG PER DAY
     Route: 048
  5. ZYLORIC [Concomitant]
     Dosage: 100MG PER DAY
     Route: 048
  6. LOXOPROFEN [Concomitant]
     Dosage: 180MG PER DAY
     Route: 048
     Dates: start: 20101231
  7. VALTREX [Suspect]
     Indication: HERPES ZOSTER
     Dosage: 1500MG PER DAY
     Route: 048
     Dates: start: 20101230, end: 20110101
  8. TAKEPRON [Concomitant]
     Dosage: 15MG PER DAY
  9. ENALAPRIL MALEATE [Concomitant]
     Dosage: 5MG PER DAY
     Route: 048
  10. ACTOS [Concomitant]
     Dosage: 15NG PER DAY
     Route: 048
  11. FUROSEMIDE [Concomitant]
     Dosage: 40MG PER DAY
  12. SENNOSIDE [Concomitant]
     Dosage: 12MG PER DAY
     Route: 048
  13. TOMIRON [Concomitant]
     Dosage: 300MG PER DAY
     Route: 048
     Dates: start: 20101229

REACTIONS (4)
  - SPEECH DISORDER [None]
  - RENAL FAILURE [None]
  - ALTERED STATE OF CONSCIOUSNESS [None]
  - PYREXIA [None]
